FAERS Safety Report 22384659 (Version 1)
Quarter: 2023Q2

REPORT INFORMATION
  Report Type: Other
  Country: RS (occurrence: None)
  Receive Date: 20230530
  Receipt Date: 20230530
  Transmission Date: 20230722
  Serious: No
  Sender: FDA-Public Use
  Company Number: RS-ROCHE-3358545

PATIENT
  Age: 48 Year
  Sex: Female
  Weight: 51 kg

DRUGS (8)
  1. OCRELIZUMAB [Suspect]
     Active Substance: OCRELIZUMAB
     Indication: Relapsing-remitting multiple sclerosis
     Dosage: SUBSEQUENT DOSE: 26/JAN/2021
     Route: 042
     Dates: start: 20210112
  2. OCRELIZUMAB [Suspect]
     Active Substance: OCRELIZUMAB
     Route: 042
     Dates: start: 20210629, end: 20210629
  3. OCRELIZUMAB [Suspect]
     Active Substance: OCRELIZUMAB
     Route: 042
     Dates: start: 20220117, end: 20220117
  4. OCRELIZUMAB [Suspect]
     Active Substance: OCRELIZUMAB
     Route: 042
     Dates: start: 20220606, end: 20220606
  5. OCRELIZUMAB [Suspect]
     Active Substance: OCRELIZUMAB
     Route: 042
     Dates: start: 20221121, end: 20221121
  6. METHYLPREDNISOLONE [Concomitant]
     Active Substance: METHYLPREDNISOLONE
     Route: 042
     Dates: start: 20221121, end: 20221121
  7. LORATADINE [Concomitant]
     Active Substance: LORATADINE
     Route: 048
     Dates: start: 20221121, end: 20221121
  8. ACETAMINOPHEN [Concomitant]
     Active Substance: ACETAMINOPHEN
     Route: 048
     Dates: start: 20221121, end: 20221121

REACTIONS (1)
  - Bacterial test positive [Recovered/Resolved]

NARRATIVE: CASE EVENT DATE: 20221116
